FAERS Safety Report 7527474-1 (Version None)
Quarter: 2011Q2

REPORT INFORMATION
  Report Type: 
  Country: None (occurrence: None)
  Receive Date: 20110607
  Receipt Date: 20110525
  Transmission Date: 20111010
  Serious: Yes (Hospitalization, Other)
  Sender: FDA-Public Use
  Company Number: JP-JNJFOC-20110303732

PATIENT
  Sex: Female
  Weight: 50 kg

DRUGS (16)
  1. ITRACONAZOLE [Suspect]
     Indication: PROPHYLAXIS
     Route: 048
     Dates: start: 20100617, end: 20100716
  2. ONCOVIN [Interacting]
     Route: 042
     Dates: start: 20100624, end: 20100624
  3. ISONIAZID [Concomitant]
     Indication: ANTIBIOTIC PROPHYLAXIS
     Route: 048
     Dates: start: 20100717
  4. LANSOPRAZOLE [Concomitant]
     Indication: PROPHYLAXIS
     Route: 048
     Dates: start: 20100617
  5. LOSARTAN POTASSIUM [Concomitant]
     Indication: HYPERTENSION
     Route: 048
     Dates: start: 20100617
  6. DAUNORUBICIN HCL [Concomitant]
     Indication: HAEMATOPOIETIC NEOPLASM
     Route: 042
     Dates: start: 20100624, end: 20100626
  7. ONCOVIN [Interacting]
     Route: 042
     Dates: start: 20100701, end: 20100701
  8. NORVASC [Concomitant]
     Indication: HYPERTENSION
     Route: 048
     Dates: start: 20100617
  9. ELSPAR [Concomitant]
     Indication: HAEMATOPOIETIC NEOPLASM
     Route: 042
     Dates: start: 20100709, end: 20100713
  10. ORGARAN [Concomitant]
     Indication: PROPHYLAXIS
     Route: 042
     Dates: start: 20100623, end: 20100630
  11. ONCOVIN [Interacting]
     Indication: HAEMATOPOIETIC NEOPLASM
     Route: 042
     Dates: start: 20100708, end: 20100708
  12. ITRACONAZOLE [Suspect]
     Indication: PROPHYLAXIS
     Route: 065
  13. ONCOVIN [Interacting]
     Route: 042
     Dates: start: 20100627, end: 20100708
  14. SULFAMETHOXAZOLE [Concomitant]
     Indication: PROPHYLAXIS
     Route: 048
     Dates: start: 20100617
  15. CYCLOPHOSPHAMIDE [Concomitant]
     Indication: HAEMATOPOIETIC NEOPLASM
     Route: 042
     Dates: start: 20100620, end: 20100624
  16. POLAPREZINC [Concomitant]
     Indication: PROPHYLAXIS
     Route: 048
     Dates: start: 20100617

REACTIONS (2)
  - ILEUS PARALYTIC [None]
  - DRUG INTERACTION [None]
